FAERS Safety Report 26195049 (Version 1)
Quarter: 2025Q4

REPORT INFORMATION
  Report Type: Spontaneous
  Country: EU (occurrence: EU)
  Receive Date: 20251224
  Receipt Date: 20251224
  Transmission Date: 20260118
  Serious: Yes (Other)
  Sender: ROCHE
  Company Number: None

PATIENT
  Age: 36 Year
  Sex: Female
  Weight: 64 kg

DRUGS (1)
  1. OCREVUS [Suspect]
     Active Substance: OCRELIZUMAB
     Indication: Multiple sclerosis
     Dosage: LAST DOSE 26-JAN-2024
     Route: 042
     Dates: start: 20190715

REACTIONS (1)
  - Cystitis noninfective [Not Recovered/Not Resolved]

NARRATIVE: CASE EVENT DATE: 20231016
